FAERS Safety Report 9315918 (Version 1)
Quarter: 2013Q2

REPORT INFORMATION
  Report Type: Spontaneous
  Country: FR (occurrence: FR)
  Receive Date: 20130530
  Receipt Date: 20130530
  Transmission Date: 20140414
  Serious: Yes (Hospitalization)
  Sender: FDA-Public Use
  Company Number: FR-AMGEN-FRASP2013037887

PATIENT
  Age: 67 Year
  Sex: Female

DRUGS (3)
  1. NEULASTA [Suspect]
     Indication: BREAST CANCER RECURRENT
     Dosage: UNK
  2. NEULASTA [Suspect]
     Indication: CHEMOTHERAPY
  3. CHEMOTHERAPEUTICS [Concomitant]
     Indication: BREAST CANCER RECURRENT
     Dosage: UNK

REACTIONS (2)
  - Aplasia [Unknown]
  - Neutrophil count abnormal [Unknown]
